FAERS Safety Report 4616510-8 (Version None)
Quarter: 2005Q1

REPORT INFORMATION
  Report Type: 
  Country: None (occurrence: None)
  Receive Date: 20050318
  Receipt Date: 20050304
  Transmission Date: 20050727
  Serious: Yes (Hospitalization)
  Sender: FDA-Public Use
  Company Number: 2005030006

PATIENT
  Age: 64 Year
  Sex: Male
  Weight: 164 kg

DRUGS (10)
  1. SOMA [Suspect]
     Indication: MUSCLE RELAXANT THERAPY
     Dosage: SEE IMAGE
     Route: 048
     Dates: start: 20050128
  2. SOMA [Suspect]
     Indication: MYALGIA
     Dosage: SEE IMAGE
     Route: 048
     Dates: start: 20050128
  3. HEPARIN [Suspect]
     Indication: COAGULOPATHY
     Dosage: 1400 U
     Dates: start: 20050202, end: 20050202
  4. LORTAB [Suspect]
     Indication: PAIN
     Dosage: 7.5 MG PRN, PO
     Route: 048
     Dates: start: 20040904
  5. LEVOFLOXACIN [Suspect]
     Indication: PROPHYLAXIS
     Dosage: 400MG QD, PO
     Route: 048
     Dates: start: 20050202, end: 20050208
  6. WARFARIN SODIUM [Suspect]
     Indication: COAGULOPATHY
     Dosage: 5 MG, PO
     Route: 048
     Dates: start: 20050201
  7. FRAGMIN [Suspect]
     Indication: COAGULOPATHY
     Dosage: 1500 U
     Dates: start: 20050206, end: 20050208
  8. IRINOTECAN HCL [Concomitant]
  9. CARBOPLATIN [Concomitant]
  10. AVASTIN [Concomitant]

REACTIONS (2)
  - PULMONARY EMBOLISM [None]
  - PULMONARY HAEMORRHAGE [None]
